FAERS Safety Report 21189155 (Version 1)
Quarter: 2022Q3

REPORT INFORMATION
  Report Type: Spontaneous
  Country: TW (occurrence: TW)
  Receive Date: 20220809
  Receipt Date: 20220809
  Transmission Date: 20221027
  Serious: Yes (Other)
  Sender: FDA-Public Use
  Company Number: TW-BRISTOL-MYERS SQUIBB COMPANY-2022-083144

PATIENT
  Sex: Male

DRUGS (1)
  1. YERVOY [Suspect]
     Active Substance: IPILIMUMAB
     Indication: Colorectal cancer
     Dosage: DOSE : 1 MG/KG;     FREQ : UNAVAILABLE
     Route: 065

REACTIONS (5)
  - Pyrexia [Unknown]
  - Headache [Unknown]
  - Hepatic pain [Unknown]
  - Carcinoembryonic antigen increased [Unknown]
  - Intentional product use issue [Unknown]
